FAERS Safety Report 17509108 (Version 1)
Quarter: 2020Q1

REPORT INFORMATION
  Report Type: Spontaneous
  Country: US (occurrence: US)
  Receive Date: 20200225
  Receipt Date: 20200225
  Transmission Date: 20200409
  Serious: Yes (Hospitalization)
  Sender: FDA-Public Use
  Company Number: None

PATIENT
  Age: 60 Year
  Sex: Female
  Weight: 62.6 kg

DRUGS (2)
  1. RITUXIMAB (RITUXIMAB 10MG/ML INJ, VIL 10ML) [Suspect]
     Active Substance: RITUXIMAB
     Indication: B-CELL LYMPHOMA
     Route: 042
     Dates: start: 20180712, end: 20181114
  2. TEMOZOLOMIDE (TEMOZOLOMIDE 250MG CAP) [Suspect]
     Active Substance: TEMOZOLOMIDE
     Indication: B-CELL LYMPHOMA
     Route: 048
     Dates: start: 20180712, end: 20181212

REACTIONS (1)
  - Organising pneumonia [None]

NARRATIVE: CASE EVENT DATE: 20190715
